FAERS Safety Report 13346431 (Version 1)
Quarter: 2017Q1

REPORT INFORMATION
  Report Type: Spontaneous
  Country: AU (occurrence: AU)
  Receive Date: 20170317
  Receipt Date: 20170317
  Transmission Date: 20170428
  Serious: Yes (Other)
  Sender: FDA-Public Use
  Company Number: AU-ASTRAZENECA-2017SE26909

PATIENT
  Sex: Female

DRUGS (1)
  1. ARIMIDEX [Suspect]
     Active Substance: ANASTROZOLE
     Route: 048

REACTIONS (4)
  - Hyperhidrosis [Unknown]
  - Hot flush [Unknown]
  - Breast cancer [Unknown]
  - Metastases to bone [Unknown]
